FAERS Safety Report 18260730 (Version 7)
Quarter: 2021Q1

REPORT INFORMATION
  Report Type: Spontaneous
  Country: US (occurrence: US)
  Receive Date: 20200914
  Receipt Date: 20210219
  Transmission Date: 20210419
  Serious: No
  Sender: FDA-Public Use
  Company Number: US-GLAXOSMITHKLINE-US2020AMR182543

PATIENT
  Sex: Female

DRUGS (4)
  1. ZEJULA [Suspect]
     Active Substance: NIRAPARIB
     Dosage: 200 MG, QD
     Dates: end: 20201118
  2. ZEJULA [Suspect]
     Active Substance: NIRAPARIB
     Dosage: 200 MG, QD
     Route: 048
     Dates: end: 20210210
  3. ZEJULA [Suspect]
     Active Substance: NIRAPARIB
     Indication: OVARIAN CANCER
     Dosage: 200 MG, QD
     Route: 048
     Dates: start: 20200822
  4. ZEJULA [Suspect]
     Active Substance: NIRAPARIB
     Dosage: 200 MG, QD
     Route: 048

REACTIONS (23)
  - Constipation [Unknown]
  - Change of bowel habit [Unknown]
  - Red blood cell count decreased [Unknown]
  - Haematocrit decreased [Unknown]
  - Eructation [Unknown]
  - Chest discomfort [Not Recovered/Not Resolved]
  - Full blood count decreased [Unknown]
  - Palpitations [Unknown]
  - Condition aggravated [Unknown]
  - Feeling abnormal [Unknown]
  - Electrocardiogram change [Unknown]
  - Fatigue [Unknown]
  - Haemoglobin decreased [Unknown]
  - Dyspnoea exertional [Unknown]
  - Headache [Unknown]
  - Dyspnoea [Unknown]
  - Thyroid disorder [Unknown]
  - Nausea [Recovered/Resolved]
  - Dyspepsia [Unknown]
  - Blood pressure increased [Recovering/Resolving]
  - Platelet count decreased [Unknown]
  - Insomnia [Unknown]
  - Petechiae [Unknown]
